FAERS Safety Report 4844212-1 (Version None)
Quarter: 2005Q4

REPORT INFORMATION
  Report Type: 
  Country: None (occurrence: None)
  Receive Date: 20051202
  Receipt Date: 20051130
  Transmission Date: 20060501
  Serious: Yes (Hospitalization, Other)
  Sender: FDA-Public Use
  Company Number: US-GLAXOSMITHKLINE-A0584120A

PATIENT
  Age: 67 Year
  Sex: Male

DRUGS (1)
  1. THIOGUANINE [Suspect]
     Indication: PSORIASIS
     Dosage: 80MG TWO TIMES PER WEEK
     Route: 048

REACTIONS (1)
  - PORTAL VEIN THROMBOSIS [None]
